FAERS Safety Report 19721784 (Version 1)
Quarter: 2021Q3

REPORT INFORMATION
  Report Type: Report from Study
  Country: US (occurrence: US)
  Receive Date: 20210819
  Receipt Date: 20210819
  Transmission Date: 20211014
  Serious: Yes (Hospitalization)
  Sender: FDA-Public Use
  Company Number: US-PFIZER INC-202101024895

PATIENT
  Age: 78 Year
  Sex: Male

DRUGS (13)
  1. METHOTREXATE SODIUM. [Suspect]
     Active Substance: METHOTREXATE SODIUM
     Dosage: 50 MG/M2 CYCLIC, REGIMEN B: OVER 2H ON D 1
     Route: 042
  2. DEXAMETHASONE. [Suspect]
     Active Substance: DEXAMETHASONE
     Dosage: 20 MG CYCLIC, REGIMEN A: 20 MG, DAILY FOR 4 D ON D 1?4 AND D 11?14
     Route: 042
  3. CYTARABINE. [Suspect]
     Active Substance: CYTARABINE
     Dosage: 500 MG/M2 CYCLIC, REGIMEN B:OVER 3 H TWICE A D X 4 DOSES ON D 2 AND 3
     Route: 042
  4. INOTUZUMAB OZOGAMICIN [Suspect]
     Active Substance: INOTUZUMAB OZOGAMICIN
     Dosage: 0.3 MG/M2 CYCLIC, REGIMEN B: ON D 2 AND 8 OF CYCLES 2 AND 4
     Route: 042
  5. PEGFILGRASTIM [Suspect]
     Active Substance: PEGFILGRASTIM
     Dosage: 6 MG CYCLIC REGIMEN A: (5?10 MCG/KG DAILY) ON D 4 UNTIL RECOVERY OF GRANULOCYTE COUNT
     Route: 058
  6. VINCRISTINE SULFATE. [Suspect]
     Active Substance: VINCRISTINE SULFATE
     Dosage: 2 MG CYCLIC, REGIMEN A: 2 MG, D 1 AND D 8
     Route: 042
  7. PEGFILGRASTIM [Suspect]
     Active Substance: PEGFILGRASTIM
     Dosage: 6 MG CYCLIC, REGIMEN B: 5?10 MCG/KG DAILY ON D 4 UNTIL RECOVERY OF GRANULOCYTE COUNT
     Route: 058
  8. MESNA. [Suspect]
     Active Substance: MESNA
     Dosage: 300 MG/M2 CYCLIC, REGIMEN A: 300 MG/M2, DAILY OVER 24 H FOR 3 D ON D 1?3
     Route: 042
  9. CYCLOPHOSPHAMIDE. [Suspect]
     Active Substance: CYCLOPHOSPHAMIDE
     Dosage: 150 MG/M2 CYCLIC, REGIMEN A: 150 MG/M2, OVER 3 H TWICE A D ON D 1?3
     Route: 042
  10. INOTUZUMAB OZOGAMICIN [Suspect]
     Active Substance: INOTUZUMAB OZOGAMICIN
     Indication: ACUTE LYMPHOCYTIC LEUKAEMIA
     Dosage: 0.3 MG/M2 CYCLIC, REGIMEN A:OVER 1 H ON D 2 AND 8 OF CYCLES 1 AND 3
     Route: 042
     Dates: start: 20210518
  11. RITUXIMAB. [Suspect]
     Active Substance: RITUXIMAB
     Dosage: 375 MG/M2 CYCLIC, REGIMEN B: 375 MG/M2, ON D 2 AND 8 OF CYCLES 2 AND 4
     Route: 042
  12. RITUXIMAB. [Suspect]
     Active Substance: RITUXIMAB
     Dosage: 375 MG/M2 CYCLIC, REGIMEN A: 375 MG/M2, ON D 2 AND D 8 OF CYCLES 1 AND 3
     Route: 042
  13. METHOTREXATE SODIUM. [Suspect]
     Active Substance: METHOTREXATE SODIUM
     Dosage: 200 MG/M2 CYCLIC, REGIMEN B: CONTINUOUS INFUSION OVER 22 H ON D 1

REACTIONS (1)
  - Encephalopathy [Recovered/Resolved]

NARRATIVE: CASE EVENT DATE: 20210703
